FAERS Safety Report 4806471-0 (Version None)
Quarter: 2005Q4

REPORT INFORMATION
  Report Type: 
  Country: None (occurrence: None)
  Receive Date: 20051019
  Receipt Date: 20051019
  Transmission Date: 20060501
  Serious: Yes (Other)
  Sender: FDA-Public Use
  Company Number: None

PATIENT
  Age: 23 Year
  Sex: Female
  Weight: 58.9676 kg

DRUGS (1)
  1. ZYRTEC-D      PFIZER  US PHARM [Suspect]
     Indication: HYPERSENSITIVITY
     Dosage: 1 TABLET    TWICE DAILY   PO
     Route: 048

REACTIONS (1)
  - PRURITUS GENERALISED [None]
